FAERS Safety Report 9233362 (Version 1)
Quarter: 2013Q2

REPORT INFORMATION
  Report Type: Spontaneous
  Country: US (occurrence: None)
  Receive Date: 20130415
  Receipt Date: 20130415
  Transmission Date: 20140414
  Serious: Yes (Other)
  Sender: FDA-Public Use
  Company Number: None

PATIENT
  Age: 67 Year
  Sex: Male

DRUGS (1)
  1. MONTELUKAST [Suspect]
     Indication: MULTIPLE ALLERGIES
     Route: 048
     Dates: start: 20121127, end: 20130301

REACTIONS (3)
  - Nightmare [None]
  - Depression [None]
  - Suicidal ideation [None]
